FAERS Safety Report 23282340 (Version 1)
Quarter: 2023Q4

REPORT INFORMATION
  Report Type: Spontaneous
  Country: DE (occurrence: DE)
  Receive Date: 20231211
  Receipt Date: 20231211
  Transmission Date: 20240110
  Serious: Yes (Hospitalization)
  Sender: FDA-Public Use
  Company Number: DE-ROCHE-3464424

PATIENT
  Age: 83 Year
  Sex: Male
  Weight: 69 kg

DRUGS (2)
  1. BEVACIZUMAB [Suspect]
     Active Substance: BEVACIZUMAB
     Indication: Hepatocellular carcinoma
     Dosage: 1040 MILLIGRAM (DOSE (1040MG) AND DATE OF LAST APPLICATION PRIOR EVENT 16/OCT/2023)
     Route: 065
     Dates: start: 20230912
  2. ATEZOLIZUMAB [Suspect]
     Active Substance: ATEZOLIZUMAB
     Indication: Hepatocellular carcinoma
     Dosage: 1200 MILLIGRAM (DOSE(1200MG) AND DATE OF LAST APPLICATION PRIOR EVENT 16/OCT/2023)
     Route: 065
     Dates: start: 20230822

REACTIONS (3)
  - Acute kidney injury [Recovered/Resolved]
  - Hyperglycaemia [Recovered/Resolved]
  - Off label use [Unknown]

NARRATIVE: CASE EVENT DATE: 20231102
